FAERS Safety Report 8345582-2 (Version None)
Quarter: 2012Q2

REPORT INFORMATION
  Report Type: 
  Country: None (occurrence: None)
  Receive Date: 20120508
  Receipt Date: 20120425
  Transmission Date: 20120825
  Serious: Yes (Other)
  Sender: FDA-Public Use
  Company Number: FR-ROCHE-1066324

PATIENT
  Sex: Female
  Weight: 49 kg

DRUGS (19)
  1. LEVOTHYROXINE SODIUM [Concomitant]
  2. BACTRIM DS [Concomitant]
     Dosage: DOSE GIVEN AS 2 SATURDAY-SUNDAY
     Dates: start: 20120222
  3. LORAMYC [Concomitant]
     Dates: start: 20120222, end: 20120418
  4. TAZOBACTAM [Concomitant]
     Dates: start: 20120221, end: 20120224
  5. VALACYCLOVIR HYDROCHLORIDE [Concomitant]
     Dates: start: 20120222
  6. SOLU-MEDROL [Concomitant]
     Dates: start: 20120223, end: 20120223
  7. MABTHERA [Suspect]
     Indication: B-CELL LYMPHOMA
     Dosage: LAST DOSE PRIOR TO SAE: 22 MAR 2012
     Route: 058
     Dates: start: 20120322
  8. FOLIC ACID [Concomitant]
     Dates: start: 20120120, end: 20120223
  9. LEVOFLOXACIN [Concomitant]
     Dates: start: 20120224, end: 20120225
  10. MABTHERA [Suspect]
     Dosage: LAST DOSE PRIOR TO SAE: 22 MAR 2012
     Route: 042
     Dates: start: 20120223
  11. KAYEXALATE [Concomitant]
     Dates: start: 20120221, end: 20120223
  12. ACETAMINOPHEN [Concomitant]
     Dates: start: 20120221, end: 20120418
  13. DURAGESIC-100 [Concomitant]
     Dosage: 1 AS NEEDED
  14. MABTHERA [Suspect]
     Route: 058
     Dates: start: 20120418
  15. VITAMIN B-12 [Concomitant]
     Dates: start: 20120120, end: 20120223
  16. ATARAX [Concomitant]
     Dates: start: 20120222
  17. ACETAMINOPHEN [Concomitant]
     Dates: start: 20120223, end: 20120223
  18. POLARAMINE [Concomitant]
     Dates: start: 20120223, end: 20120223
  19. AMIKACIN [Concomitant]
     Dates: start: 20120221, end: 20120223

REACTIONS (1)
  - INJECTION SITE PAIN [None]
